FAERS Safety Report 24456263 (Version 2)
Quarter: 2024Q4

REPORT INFORMATION
  Report Type: Report from Study
  Country: JP (occurrence: JP)
  Receive Date: 20241017
  Receipt Date: 20241018
  Transmission Date: 20250114
  Serious: No
  Sender: ROCHE
  Company Number: JP-ROCHE-3496138

PATIENT
  Age: 56 Year
  Sex: Female
  Weight: 73.0 kg

DRUGS (3)
  1. RITUXAN [Suspect]
     Active Substance: RITUXIMAB
     Indication: Systemic scleroderma
     Dosage: SUBSEQUENT DOSE ON 16/MAR/2023, 23/MAR/2023 AND 30/MAR/2023
     Route: 041
     Dates: start: 20230307, end: 20230330
  2. CELLCEPT [Suspect]
     Active Substance: MYCOPHENOLATE MOFETIL
     Indication: Systemic scleroderma
     Route: 048
     Dates: start: 20230810, end: 20231116
  3. CYCLOPHOSPHAMIDE [Concomitant]
     Active Substance: CYCLOPHOSPHAMIDE
     Indication: Systemic scleroderma
     Route: 065
     Dates: start: 20220422, end: 20230203

REACTIONS (2)
  - Infusion related reaction [Recovered/Resolved]
  - Liver disorder [Recovering/Resolving]

NARRATIVE: CASE EVENT DATE: 20230307
